FAERS Safety Report 5585157-1 (Version None)
Quarter: 2008Q1

REPORT INFORMATION
  Report Type: 
  Country: None (occurrence: None)
  Receive Date: 20080104
  Receipt Date: 20080104
  Transmission Date: 20080703
  Serious: Yes (Other)
  Sender: FDA-Public Use
  Company Number: None

PATIENT
  Age: 60 Year
  Sex: Female
  Weight: 45.3597 kg

DRUGS (1)
  1. BONIVA [Suspect]
     Indication: OSTEOPOROSIS
     Dosage: 1 TABLET MONTHLY PO
     Route: 048
     Dates: start: 20070801, end: 20071001

REACTIONS (2)
  - OSTEOMYELITIS [None]
  - PAIN IN JAW [None]
